FAERS Safety Report 11322271 (Version 2)
Quarter: 2015Q3

REPORT INFORMATION
  Report Type: Spontaneous
  Country: AT (occurrence: AT)
  Receive Date: 20150729
  Receipt Date: 20150805
  Transmission Date: 20151125
  Serious: Yes (Other)
  Sender: FDA-Public Use
  Company Number: AT-ALVOGEN-2015AL003026

PATIENT
  Sex: Male

DRUGS (1)
  1. ATENOLOL AND CHLORTHALIDONE [Suspect]
     Active Substance: ATENOLOL\CHLORTHALIDONE
     Indication: PRODUCT USED FOR UNKNOWN INDICATION
     Route: 048

REACTIONS (4)
  - Somnolence [Unknown]
  - Sexual dysfunction [Unknown]
  - Drug intolerance [Unknown]
  - Circulatory collapse [Unknown]
